FAERS Safety Report 23866341 (Version 1)
Quarter: 2024Q2

REPORT INFORMATION
  Report Type: Spontaneous
  Country: FR (occurrence: FR)
  Receive Date: 20240517
  Receipt Date: 20240517
  Transmission Date: 20240716
  Serious: Yes (Hospitalization, Other)
  Sender: FDA-Public Use
  Company Number: FR-AFSSAPS-PC2024000340

PATIENT
  Age: 66 Year
  Sex: Female

DRUGS (24)
  1. DOXORUBICIN [Suspect]
     Active Substance: DOXORUBICIN
     Indication: Follicular lymphoma stage III
     Dosage: 1 DOSAGE FORM, EVERY 21 DAYS
     Route: 042
     Dates: start: 20240405, end: 20240405
  2. PREDNISONE [Suspect]
     Active Substance: PREDNISONE
     Indication: Follicular lymphoma stage III
     Dosage: 1 DOSAGE FORM, EVERY 21 DAYS
     Route: 042
     Dates: start: 20240405, end: 20240405
  3. CYCLOPHOSPHAMIDE [Suspect]
     Active Substance: CYCLOPHOSPHAMIDE
     Indication: Follicular lymphoma stage III
     Dosage: 1 DOSAGE FORM, EVERY 21 DAYS
     Route: 042
     Dates: start: 20240405, end: 20240405
  4. RITUXIMAB [Suspect]
     Active Substance: RITUXIMAB
     Indication: Follicular lymphoma stage III
     Dosage: 1 DOSAGE FORM, EVERY 21 DAYS
     Route: 042
     Dates: start: 20240405, end: 20240405
  5. VINCRISTINE SULFATE [Suspect]
     Active Substance: VINCRISTINE SULFATE
     Indication: Follicular lymphoma stage III
     Dosage: 1 DOSAGE FORM, EVERY 21 DAYS
     Route: 042
     Dates: start: 20240405, end: 20240405
  6. PRIMPERAN [Concomitant]
     Active Substance: METOCLOPRAMIDE HYDROCHLORIDE
     Indication: Nausea
     Dosage: 3 DOSAGE FORM, ONCE A DAY (1 COMPRIM? MATIN, MIDI ET SOIR SI NAUS?ES)
     Route: 048
  7. PREDNISONE [Concomitant]
     Active Substance: PREDNISONE
     Indication: Product used for unknown indication
     Dosage: 60 MILLIGRAM, ONCE A DAY
     Route: 048
  8. ENTECAVIR [Concomitant]
     Active Substance: ENTECAVIR
     Indication: Antiviral prophylaxis
     Dosage: 1 DOSAGE FORM, EVERY 3 DAYS (1 CP LE SOIR TOUS LES 3 JOURS)
     Route: 048
  9. FUROSEMIDE [Concomitant]
     Active Substance: FUROSEMIDE
     Indication: Product used for unknown indication
     Dosage: 1 DOSAGE FORM, ONCE A DAY (1 LE MATIN)
     Route: 048
  10. FOLIC ACID [Concomitant]
     Active Substance: FOLIC ACID
     Indication: Product used for unknown indication
     Dosage: 1 DOSAGE FORM, ONCE A DAY (1 COMPRIM? LE MATIN (5 MG))
     Route: 048
  11. LEVOTHYROXINE [Concomitant]
     Active Substance: LEVOTHYROXINE\LEVOTHYROXINE SODIUM
     Indication: Hypothyroidism
     Dosage: 1.5 DOSAGE FORM, ONCE A DAY (1,5 COMPRIM? LE MATIN)
     Route: 048
  12. FEBUXOSTAT [Concomitant]
     Active Substance: FEBUXOSTAT
     Indication: Product used for unknown indication
     Dosage: 1 DOSAGE FORM, ONCE A DAY (1 COMPRIM? LE MIDI (80MG))
     Route: 048
  13. PRAVASTATIN SODIUM [Concomitant]
     Active Substance: PRAVASTATIN SODIUM
     Indication: Dyslipidaemia
     Dosage: 1 DOSAGE FORM, ONCE A DAY (1 COMPRIM? LE SOIR)
     Route: 048
  14. COTRIMOXAZOLE [Concomitant]
     Active Substance: SULFAMETHOXAZOLE\TRIMETHOPRIM
     Indication: Antibiotic prophylaxis
     Dosage: 1 DOSAGE FORM, ONCE A DAY (1 CP PAR JOUR)
     Route: 048
  15. BISOPROLOL FUMARATE [Concomitant]
     Active Substance: BISOPROLOL FUMARATE
     Indication: Product used for unknown indication
     Dosage: 2 DOSAGE FORM, ONCE A DAY (1 COMPRIM? MATIN ET SOIR (1,25MG))
     Route: 048
  16. LANSOPRAZOLE [Concomitant]
     Active Substance: LANSOPRAZOLE
     Indication: Product used for unknown indication
     Dosage: 1 DOSAGE FORM, ONCE A DAY (1 DOSAGE FORM, ONCE A DAY)
     Route: 048
  17. FUNGIZONE [Concomitant]
     Active Substance: AMPHOTERICIN B
     Indication: Mucosal inflammation
     Dosage: 3 DOSAGE FORM, ONCE A DAY (1 BAIN DE BOUCHE APR?S CHAQUE REPAS 3 FOIS PAR JOUR)
     Route: 048
  18. SPAGULAX [Concomitant]
     Active Substance: HERBALS\PLANTAGO OVATA SEED
     Indication: Constipation
     Dosage: 2 DOSAGE FORM, ONCE A DAY (1 MATIN ET SOIR SI BESOIN)
     Route: 048
  19. VALACYCLOVIR HYDROCHLORIDE [Concomitant]
     Active Substance: VALACYCLOVIR HYDROCHLORIDE
     Indication: Antiviral prophylaxis
     Dosage: 1 DOSAGE FORM, ONCE A DAY (1 CP LE MATIN)
     Route: 048
  20. SODIUM BICARBONATE [Concomitant]
     Active Substance: SODIUM BICARBONATE
     Indication: Mucosal inflammation
     Dosage: 3 DOSAGE FORM, ONCE A DAY (1 BAIN DE BOUCHE APR?S CHAQUE REPAS 3 FOIS PAR JOUR)
     Route: 048
  21. ACETAMINOPHEN [Concomitant]
     Active Substance: ACETAMINOPHEN
     Indication: Pain
     Dosage: 2 DOSAGE FORM, ONCE A DAY (2 CP SI DOULEUR)
     Route: 048
  22. FILGRASTIM [Concomitant]
     Active Substance: FILGRASTIM
     Indication: Neutropenia
     Dosage: 1 DOSAGE FORM (SI BESOIN SUR APPEL DU M?DECIN UNIQUEMENT EN FONCTION DES PRISES DE SANG)
     Route: 058
  23. MOVICOL [Concomitant]
     Active Substance: POLYETHYLENE GLYCOL 3350\POTASSIUM CHLORIDE\SODIUM BICARBONATE\SODIUM CHLORIDE
     Indication: Constipation
     Dosage: 2 DOSAGE FORM, ONCE A DAY (2 SACHET SI BESOIN)
     Route: 048
  24. SEVELAMER CARBONATE [Concomitant]
     Active Substance: SEVELAMER CARBONATE
     Indication: Product used for unknown indication
     Dosage: 3 DOSAGE FORM, ONCE A DAY (1 COMPRIM? MATIN, MIDI ET SOIR)
     Route: 048

REACTIONS (1)
  - Posterior reversible encephalopathy syndrome [Recovering/Resolving]

NARRATIVE: CASE EVENT DATE: 20240417
